FAERS Safety Report 17760350 (Version 1)
Quarter: 2020Q2

REPORT INFORMATION
  Report Type: Spontaneous
  Country: US (occurrence: US)
  Receive Date: 20200507
  Receipt Date: 20200507
  Transmission Date: 20200714
  Serious: Yes (Death)
  Sender: FDA-Public Use
  Company Number: None

PATIENT
  Age: 58 Year
  Sex: Male

DRUGS (14)
  1. ACYCLOVIR TAB 400MG [Concomitant]
     Active Substance: ACYCLOVIR
     Dates: start: 20200219
  2. BENZONATATE CAP 100MG [Concomitant]
     Dates: start: 20200215
  3. DOXAZOSIN TAB 2MG [Concomitant]
     Dates: start: 20200418
  4. LEVOFLOXACIN TAB 250MG [Concomitant]
     Dates: start: 20200403
  5. HYDRALAZINE TAB 100MG [Concomitant]
     Dates: start: 20200306
  6. METFORMIN TAB 500MG ER [Concomitant]
     Dates: start: 20200304
  7. LEVOTHYROXIN TAB 150MCG [Concomitant]
     Dates: start: 20200330
  8. FARYDAK [Suspect]
     Active Substance: PANOBINOSTAT
     Indication: NEOPLASM MALIGNANT
     Dosage: 20 MG CAPSULE WRITTEN BELOW B.5 ORALLY
     Route: 048
     Dates: start: 20200321, end: 20200421
  9. SEVELAMER TAB 800MG [Concomitant]
     Dates: start: 20200418
  10. FAMOTIDINE TAB 40MG [Concomitant]
     Dates: start: 20200420
  11. ALLOPURINOL TAB 100MG [Concomitant]
     Dates: start: 20200418
  12. HYDROCORT TAB 5MG [Concomitant]
     Dates: start: 20200404
  13. DEXAMETHASON TAB 4MG [Concomitant]
     Active Substance: DEXAMETHASONE
     Dates: start: 20200325
  14. AMLODIPINE TAV 5MG [Concomitant]
     Dates: start: 20200224

REACTIONS (1)
  - Death [None]

NARRATIVE: CASE EVENT DATE: 20200507
